FAERS Safety Report 21186772 (Version 3)
Quarter: 2022Q4

REPORT INFORMATION
  Report Type: Spontaneous
  Country: US (occurrence: US)
  Receive Date: 20220808
  Receipt Date: 20221123
  Transmission Date: 20230113
  Serious: No
  Sender: FDA-Public Use
  Company Number: US-BRISTOL-MYERS SQUIBB COMPANY-2022-086117

PATIENT
  Age: 74 Year
  Sex: Female

DRUGS (1)
  1. POMALYST [Suspect]
     Active Substance: POMALIDOMIDE
     Indication: Breast cancer female
     Dosage: TAKE 1 CAPSULE EVERY DAY 21 DAYS THEN 7 DAYS OFF
     Route: 048
     Dates: start: 20220831

REACTIONS (6)
  - Rash [Unknown]
  - Skin disorder [Unknown]
  - Joint swelling [Unknown]
  - Erythema [Unknown]
  - Respiratory tract congestion [Unknown]
  - Off label use [Unknown]
